FAERS Safety Report 9547904 (Version 1)
Quarter: 2013Q3

REPORT INFORMATION
  Report Type: Spontaneous
  Country: US (occurrence: US)
  Receive Date: 20130924
  Receipt Date: 20130924
  Transmission Date: 20140515
  Serious: No
  Sender: FDA-Public Use
  Company Number: US-PURDUE-USA-2012-0082965

PATIENT
  Sex: Male

DRUGS (3)
  1. MORPHINE SULFATE (SIMILAR TO NDA 19-516) [Suspect]
     Indication: PAIN
     Dosage: 30 MG, BID
  2. MORPHINE SULFATE (SIMILAR TO NDA 19-516) [Suspect]
     Dosage: 15 MG, QID
  3. MORPHINE SULFATE (SIMILAR TO NDA 19-516) [Suspect]
     Dosage: 15 MG, BID

REACTIONS (1)
  - Depression [Recovered/Resolved]
